FAERS Safety Report 5503446-3 (Version None)
Quarter: 2007Q4

REPORT INFORMATION
  Report Type: 
  Country: None (occurrence: None)
  Receive Date: 20071031
  Receipt Date: 20071019
  Transmission Date: 20080405
  Serious: Yes (Hospitalization, Other)
  Sender: FDA-Public Use
  Company Number: US-PFIZER INC-2007089141

PATIENT
  Sex: Male
  Weight: 80.5 kg

DRUGS (7)
  1. CHANTIX [Suspect]
     Indication: SMOKING CESSATION THERAPY
  2. AMBIEN [Suspect]
     Indication: SLEEP DISORDER
  3. SEROQUEL [Concomitant]
     Indication: BIPOLAR DISORDER
  4. DEPAKOTE [Concomitant]
     Indication: DEPRESSION
  5. TEMAZEPAM [Concomitant]
     Indication: INSOMNIA
  6. LEXAPRO [Concomitant]
  7. VICODIN [Concomitant]
     Indication: BACK PAIN

REACTIONS (3)
  - NAUSEA [None]
  - UNEVALUABLE EVENT [None]
  - VOMITING [None]
